FAERS Safety Report 4532694-4 (Version None)
Quarter: 2004Q4

REPORT INFORMATION
  Report Type: 
  Country: None (occurrence: None)
  Receive Date: 20041221
  Receipt Date: 20041210
  Transmission Date: 20050328
  Serious: Yes (Hospitalization)
  Sender: FDA-Public Use
  Company Number: PHHO2004IN17608

PATIENT
  Age: 20 Year
  Sex: Female

DRUGS (1)
  1. GLEEVEC [Suspect]
     Indication: CHRONIC MYELOID LEUKAEMIA
     Dosage: 400 MG, QD
     Route: 048
     Dates: start: 20040707, end: 20041203

REACTIONS (3)
  - MOUTH ULCERATION [None]
  - MUCOSAL INFLAMMATION [None]
  - WHITE BLOOD CELL COUNT DECREASED [None]
